FAERS Safety Report 22360615 (Version 1)
Quarter: 2023Q2

REPORT INFORMATION
  Report Type: Spontaneous
  Country: US (occurrence: US)
  Receive Date: 20230524
  Receipt Date: 20230524
  Transmission Date: 20230721
  Serious: No
  Sender: FDA-Public Use
  Company Number: US-UCBSA-2022029418

PATIENT
  Sex: Female

DRUGS (7)
  1. CIMZIA [Suspect]
     Active Substance: CERTOLIZUMAB PEGOL
     Indication: Product used for unknown indication
     Dosage: 200 MILLIGRAM, EV 2 WEEKS(QOW)
     Route: 058
  2. HERBALS\PLANTAGO OVATA SEED\PLANTAGO SEED [Concomitant]
     Active Substance: HERBALS\PLANTAGO OVATA SEED\PLANTAGO SEED
     Indication: Product used for unknown indication
     Dosage: 0.4 GRAM
  3. MONTELUKAST SODIUM [Concomitant]
     Active Substance: MONTELUKAST SODIUM
     Indication: Product used for unknown indication
     Dosage: UNK
  4. CETIRIZ-D [Concomitant]
     Indication: Product used for unknown indication
     Dosage: UNK
  5. PRENA [Concomitant]
     Indication: Product used for unknown indication
     Dosage: 1.4 MILLIGRAM
  6. VITAMIN D NOS [Concomitant]
     Active Substance: VITAMIN D NOS
     Indication: Product used for unknown indication
     Dosage: 100 MILLIGRAM
  7. LEVOTHYROXINE [Concomitant]
     Active Substance: LEVOTHYROXINE
     Indication: Product used for unknown indication
     Dosage: 112 MICROGRAM

REACTIONS (2)
  - Constipation [Unknown]
  - Maternal exposure during pregnancy [Unknown]
